FAERS Safety Report 9274359 (Version 1)
Quarter: 2013Q2

REPORT INFORMATION
  Report Type: Spontaneous
  Country: US (occurrence: US)
  Receive Date: 20130506
  Receipt Date: 20130506
  Transmission Date: 20140414
  Serious: Yes (Life-Threatening, Hospitalization)
  Sender: FDA-Public Use
  Company Number: US-ELI_LILLY_AND_COMPANY-US201304008787

PATIENT
  Age: 40 Year
  Sex: Female

DRUGS (2)
  1. FORTEO [Suspect]
     Indication: HYPOPARATHYROIDISM
     Dosage: 20 UG, QD
     Route: 058
     Dates: start: 2012
  2. FORTEO [Suspect]
     Dosage: 20 UG, BID

REACTIONS (6)
  - Blood calcium decreased [Unknown]
  - Chest discomfort [Unknown]
  - Muscle spasms [Unknown]
  - Paraesthesia oral [Unknown]
  - Off label use [Not Recovered/Not Resolved]
  - Inappropriate schedule of drug administration [Not Recovered/Not Resolved]
